FAERS Safety Report 4705467-7 (Version None)
Quarter: 2005Q2

REPORT INFORMATION
  Report Type: 
  Country: None (occurrence: None)
  Receive Date: 20050629
  Receipt Date: 20040930
  Transmission Date: 20051028
  Serious: Yes (Hospitalization)
  Sender: FDA-Public Use
  Company Number: 200417492US

PATIENT
  Age: 52 Year
  Sex: Male
  Weight: 99.5 kg

DRUGS (9)
  1. GLUCOPHAGE XR [Suspect]
     Indication: DIABETES MELLITUS
     Dosage: 500-2000 MG QD PO
     Route: 048
     Dates: start: 20031212, end: 20040916
  2. AVANDIA [Concomitant]
  3. GLUCOTROL XL [Concomitant]
  4. RANITIDINE [Concomitant]
  5. NITROSTAT [Concomitant]
  6. VALSARTAN [Concomitant]
  7. TENORMIN [Concomitant]
  8. LOVASTATIN [Concomitant]
  9. GLUCOTROL XL [Suspect]
     Indication: DIABETES MELLITUS
     Dosage: 20  MG QD PO
     Route: 048
     Dates: start: 20030120

REACTIONS (4)
  - CONFUSIONAL STATE [None]
  - DIZZINESS [None]
  - FALL [None]
  - RIB FRACTURE [None]
